FAERS Safety Report 5356746-4 (Version None)
Quarter: 2007Q2

REPORT INFORMATION
  Report Type: 
  Country: None (occurrence: None)
  Receive Date: 20070614
  Receipt Date: 20060619
  Transmission Date: 20071010
  Serious: No
  Sender: FDA-Public Use
  Company Number: US-ASTRAZENECA-2006UW12958

PATIENT
  Age: 63 Year
  Sex: Female
  Weight: 66.7 kg

DRUGS (1)
  1. ATACAND [Suspect]
     Indication: HYPERTENSION
     Route: 048

REACTIONS (4)
  - BRONCHIAL DISORDER [None]
  - CROUP INFECTIOUS [None]
  - INFLUENZA LIKE ILLNESS [None]
  - PYREXIA [None]
